FAERS Safety Report 19642429 (Version 1)
Quarter: 2021Q3

REPORT INFORMATION
  Report Type: Spontaneous
  Country: CN (occurrence: CN)
  Receive Date: 20210730
  Receipt Date: 20210730
  Transmission Date: 20211014
  Serious: Yes (Death, Hospitalization, Other)
  Sender: FDA-Public Use
  Company Number: CN-SA-2021SA250418

PATIENT
  Age: 62 Year
  Sex: Male

DRUGS (5)
  1. CAPECITABINE. [Suspect]
     Active Substance: CAPECITABINE
     Indication: CHEMOTHERAPY
  2. REGORAFENIB. [Suspect]
     Active Substance: REGORAFENIB
     Indication: CHEMOTHERAPY
  3. OXALIPLATIN. [Suspect]
     Active Substance: OXALIPLATIN
     Indication: CHEMOTHERAPY
  4. PEMBROLIZUMAB. [Suspect]
     Active Substance: PEMBROLIZUMAB
     Indication: CHEMOTHERAPY
     Dosage: 200 MG, QD
     Route: 042
     Dates: start: 20200807
  5. NIFEDIPINE. [Concomitant]
     Active Substance: NIFEDIPINE
     Route: 048

REACTIONS (25)
  - Skin odour abnormal [Fatal]
  - Left ventricular failure [Fatal]
  - Blister [Fatal]
  - Skin injury [Fatal]
  - Rash [Fatal]
  - Multiple organ dysfunction syndrome [Fatal]
  - Erythema [Fatal]
  - Toxic epidermal necrolysis [Fatal]
  - Skin erosion [Fatal]
  - Blister rupture [Fatal]
  - Skin disorder [Fatal]
  - Fungal infection [Fatal]
  - Skin infection [Fatal]
  - Flushing [Fatal]
  - Myocardial infarction [Fatal]
  - Brain natriuretic peptide increased [Fatal]
  - Stevens-Johnson syndrome [Fatal]
  - Respiratory acidosis [Fatal]
  - Metabolic alkalosis [Fatal]
  - Bacterial infection [Fatal]
  - Skin exfoliation [Fatal]
  - Leukoplakia oral [Fatal]
  - Wound [Fatal]
  - Platelet count decreased [Fatal]
  - Tachypnoea [Fatal]

NARRATIVE: CASE EVENT DATE: 20200809
